FAERS Safety Report 11951208 (Version 2)
Quarter: 2016Q2

REPORT INFORMATION
  Report Type: Report from Study
  Country: US (occurrence: US)
  Receive Date: 20160125
  Receipt Date: 20160421
  Transmission Date: 20160815
  Serious: Yes (Death, Hospitalization, Other)
  Sender: FDA-Public Use
  Company Number: US-TAKEDA-2016MPI000400

PATIENT
  Age: 60 Year
  Sex: Male

DRUGS (7)
  1. MS CONTIN [Concomitant]
     Active Substance: MORPHINE SULFATE
  2. ZOVIRAX [Concomitant]
     Active Substance: ACYCLOVIR
  3. VELCADE [Suspect]
     Active Substance: BORTEZOMIB
     Dosage: 2.58 MG, UNK
     Route: 058
     Dates: start: 20151222
  4. DEXAMETHASONE. [Concomitant]
     Active Substance: DEXAMETHASONE
  5. PREDNISONE. [Concomitant]
     Active Substance: PREDNISONE
  6. COMPAZINE [Concomitant]
     Active Substance: PROCHLORPERAZINE MALEATE
  7. VELCADE [Suspect]
     Active Substance: BORTEZOMIB
     Indication: PLASMA CELL MYELOMA
     Dosage: 2.55 MG, UNK
     Route: 058
     Dates: start: 20151215

REACTIONS (5)
  - Unresponsive to stimuli [Unknown]
  - Hepatic failure [Unknown]
  - Death [Fatal]
  - Mental status changes [Unknown]
  - Renal failure [Unknown]

NARRATIVE: CASE EVENT DATE: 20151228
